FAERS Safety Report 15586875 (Version 1)
Quarter: 2018Q4

REPORT INFORMATION
  Report Type: Spontaneous
  Country: US (occurrence: US)
  Receive Date: 20181102
  Receipt Date: 20181102
  Transmission Date: 20190205
  Serious: Yes (Other)
  Sender: FDA-Public Use
  Company Number: None

PATIENT
  Age: 65 Year
  Sex: Male
  Weight: 70.65 kg

DRUGS (8)
  1. PREDNISONE. [Concomitant]
     Active Substance: PREDNISONE
  2. FLOMAX [Concomitant]
     Active Substance: TAMSULOSIN HYDROCHLORIDE
  3. FISH OIL [Concomitant]
     Active Substance: FISH OIL
  4. VITAMIN D [Concomitant]
     Active Substance: CHOLECALCIFEROL
  5. KLONOPIN [Concomitant]
     Active Substance: CLONAZEPAM
  6. LAMICTAL [Concomitant]
     Active Substance: LAMOTRIGINE
  7. LEVOFLOXACIN. [Suspect]
     Active Substance: LEVOFLOXACIN
     Indication: URINARY TRACT INFECTION
     Dosage: ?          QUANTITY:1 DF DOSAGE FORM;?
     Route: 048
     Dates: start: 20181031
  8. CIPRO [Suspect]
     Active Substance: CIPROFLOXACIN HYDROCHLORIDE

REACTIONS (9)
  - Symptom recurrence [None]
  - Confusional state [None]
  - Emotional distress [None]
  - Arthralgia [None]
  - Anxiety [None]
  - Myalgia [None]
  - Agitation [None]
  - Mental disorder [None]
  - Mood swings [None]

NARRATIVE: CASE EVENT DATE: 20181102
